FAERS Safety Report 14297955 (Version 4)
Quarter: 2018Q1

REPORT INFORMATION
  Report Type: Report from Study
  Country: DE (occurrence: DE)
  Receive Date: 20171218
  Receipt Date: 20180123
  Transmission Date: 20180509
  Serious: Yes (Other)
  Sender: FDA-Public Use
  Company Number: DE-TEVA-2017-DE-831855

PATIENT
  Sex: Male
  Weight: 74 kg

DRUGS (62)
  1. DEXAMETHASONE. [Suspect]
     Active Substance: DEXAMETHASONE
     Dosage: 40 MG, UNK
     Route: 065
     Dates: start: 20170327, end: 20170327
  2. DEXAMETHASONE. [Suspect]
     Active Substance: DEXAMETHASONE
     Dosage: 40 MG, UNK
     Route: 065
     Dates: start: 20170821, end: 20170821
  3. DEXAMETHASONE. [Suspect]
     Active Substance: DEXAMETHASONE
     Dosage: 40 MG, UNK
     Route: 065
     Dates: start: 20170313, end: 20170313
  4. DEXAMETHASONE. [Suspect]
     Active Substance: DEXAMETHASONE
     Dosage: 40 MG, UNK
     Route: 065
     Dates: start: 20170703, end: 20170703
  5. CARFILZOMIB [Suspect]
     Active Substance: CARFILZOMIB
     Dosage: 27 MG, UNK
     Route: 042
     Dates: start: 20170424, end: 20170425
  6. LENALIDOMIDE [Suspect]
     Active Substance: LENALIDOMIDE
     Dosage: 20 MG, UNK
     Route: 065
     Dates: start: 20170717, end: 20170723
  7. DEXAMETHASONE. [Suspect]
     Active Substance: DEXAMETHASONE
     Dosage: 40 MG, UNK
     Route: 065
     Dates: start: 20171016, end: 20171016
  8. DEXAMETHASONE. [Suspect]
     Active Substance: DEXAMETHASONE
     Dosage: 40 MG, UNK
     Route: 065
     Dates: start: 20170508, end: 20170508
  9. DEXAMETHASONE. [Suspect]
     Active Substance: DEXAMETHASONE
     Dosage: 40 MG, UNK
     Route: 065
     Dates: start: 20170619, end: 20170619
  10. DEXAMETHASONE. [Suspect]
     Active Substance: DEXAMETHASONE
     Dosage: 40 MG, UNK
     Route: 065
     Dates: start: 20170403, end: 20170403
  11. DEXAMETHASONE. [Suspect]
     Active Substance: DEXAMETHASONE
     Dosage: 40 MG, UNK
     Route: 065
     Dates: start: 20170717, end: 20170717
  12. CARFILZOMIB [Suspect]
     Active Substance: CARFILZOMIB
     Dosage: 27 MG, UNK
     Route: 042
     Dates: start: 20170320, end: 20170321
  13. CARFILZOMIB [Suspect]
     Active Substance: CARFILZOMIB
     Dosage: 27 MG, UNK
     Route: 042
     Dates: start: 20170731, end: 20170801
  14. CARFILZOMIB [Suspect]
     Active Substance: CARFILZOMIB
     Dosage: 27 MG, UNK
     Route: 042
     Dates: start: 20170619, end: 20170619
  15. CARFILZOMIB [Suspect]
     Active Substance: CARFILZOMIB
     Dosage: 27 MG, UNK
     Route: 042
     Dates: start: 20170417, end: 20170418
  16. LENALIDOMIDE [Suspect]
     Active Substance: LENALIDOMIDE
     Indication: PLASMA CELL MYELOMA
     Dosage: 25 MG, UNK
     Route: 065
     Dates: start: 20170703, end: 20170707
  17. ACIC [Concomitant]
     Active Substance: ACYCLOVIR
     Indication: PROPHYLAXIS
     Dosage: 400 MG, BID
     Dates: start: 20170313
  18. DEXAMETHASONE. [Suspect]
     Active Substance: DEXAMETHASONE
     Indication: PLASMA CELL MYELOMA
     Dosage: 40 MG, UNK
     Route: 065
     Dates: start: 20170710, end: 20170710
  19. DEXAMETHASONE. [Suspect]
     Active Substance: DEXAMETHASONE
     Dosage: 40 MG, UNK
     Route: 065
     Dates: start: 20170918, end: 20170918
  20. DEXAMETHASONE. [Suspect]
     Active Substance: DEXAMETHASONE
     Dosage: 40 MG, UNK
     Route: 065
     Dates: start: 20170501, end: 20170501
  21. DEXAMETHASONE. [Suspect]
     Active Substance: DEXAMETHASONE
     Dosage: 40 MG, UNK
     Route: 065
     Dates: start: 20170731, end: 20170731
  22. DEXAMETHASONE. [Suspect]
     Active Substance: DEXAMETHASONE
     Dosage: 40 MG, UNK
     Route: 065
     Dates: start: 20170814, end: 20170814
  23. DEXAMETHASONE. [Suspect]
     Active Substance: DEXAMETHASONE
     Dosage: 40 MG, UNK
     Route: 065
     Dates: start: 20170904, end: 20170904
  24. DEXAMETHASONE. [Suspect]
     Active Substance: DEXAMETHASONE
     Dosage: 40 MG, UNK
     Route: 065
     Dates: start: 20170828, end: 20170828
  25. DEXAMETHASONE. [Suspect]
     Active Substance: DEXAMETHASONE
     Dosage: 40 MG, UNK
     Route: 065
     Dates: start: 20170320, end: 20170320
  26. DEXAMETHASONE. [Suspect]
     Active Substance: DEXAMETHASONE
     Dosage: 40 MG, UNK
     Route: 065
     Dates: start: 20170515, end: 20170515
  27. DEXAMETHASONE. [Suspect]
     Active Substance: DEXAMETHASONE
     Dosage: 40 MG, UNK
     Route: 065
     Dates: start: 20170410, end: 20170410
  28. CARFILZOMIB [Suspect]
     Active Substance: CARFILZOMIB
     Dosage: 27 MG, UNK
     Route: 042
     Dates: start: 20170327, end: 20170328
  29. CARFILZOMIB [Suspect]
     Active Substance: CARFILZOMIB
     Dosage: 27 MG, UNK
     Route: 042
     Dates: start: 20170522, end: 20170523
  30. LENALIDOMIDE [Suspect]
     Active Substance: LENALIDOMIDE
     Dosage: 20 MG, UNK
     Route: 065
     Dates: start: 20170911, end: 20170917
  31. LENALIDOMIDE [Suspect]
     Active Substance: LENALIDOMIDE
     Dosage: 20 MG, UNK
     Route: 065
     Dates: start: 20170828, end: 20170903
  32. DEXAMETHASONE. [Suspect]
     Active Substance: DEXAMETHASONE
     Dosage: 40 MG, UNK
     Route: 065
     Dates: start: 20170522, end: 20170522
  33. DEXAMETHASONE. [Suspect]
     Active Substance: DEXAMETHASONE
     Dosage: 40 MG, UNK
     Route: 065
     Dates: start: 20170424, end: 20170424
  34. CARFILZOMIB [Suspect]
     Active Substance: CARFILZOMIB
     Dosage: 20 MG, UNK
     Route: 042
     Dates: start: 20170313, end: 20170314
  35. LENALIDOMIDE [Suspect]
     Active Substance: LENALIDOMIDE
     Dosage: 25 MG, UNK
     Route: 065
     Dates: start: 20170313, end: 20170402
  36. ZOMETA [Concomitant]
     Active Substance: ZOLEDRONIC ACID
     Indication: PROPHYLAXIS
     Dosage: 4 MG, QMO
     Dates: start: 20140210
  37. DEXAMETHASONE. [Suspect]
     Active Substance: DEXAMETHASONE
     Dosage: 40 MG, UNK
     Route: 065
     Dates: start: 20171009, end: 20171009
  38. CARFILZOMIB [Suspect]
     Active Substance: CARFILZOMIB
     Dosage: 27 MG, UNK
     Route: 042
     Dates: start: 20170612, end: 20170613
  39. CLEXANE [Concomitant]
     Active Substance: ENOXAPARIN SODIUM
     Indication: PROPHYLAXIS
     Dosage: 40 MG, QD
     Dates: start: 20170313
  40. DEXAMETHASONE. [Suspect]
     Active Substance: DEXAMETHASONE
     Dosage: 40 MG, UNK
     Route: 065
     Dates: start: 20170612, end: 20170612
  41. DEXAMETHASONE. [Suspect]
     Active Substance: DEXAMETHASONE
     Dosage: 40 MG, UNK
     Route: 065
     Dates: start: 20170529, end: 20170529
  42. DEXAMETHASONE. [Suspect]
     Active Substance: DEXAMETHASONE
     Dosage: 40 MG, UNK
     Route: 065
     Dates: start: 20170417, end: 20170417
  43. CARFILZOMIB [Suspect]
     Active Substance: CARFILZOMIB
     Dosage: 27 MG, UNK
     Route: 042
     Dates: start: 20170814, end: 20170815
  44. LENALIDOMIDE [Suspect]
     Active Substance: LENALIDOMIDE
     Dosage: 25 MG, UNK
     Route: 065
     Dates: start: 20170410, end: 20170430
  45. LENALIDOMIDE [Suspect]
     Active Substance: LENALIDOMIDE
     Dosage: 20 MG, UNK
     Route: 065
     Dates: start: 20170925, end: 20171001
  46. LENALIDOMIDE [Suspect]
     Active Substance: LENALIDOMIDE
     Dosage: 25 MG, UNK
     Route: 065
     Dates: start: 20170508, end: 20170528
  47. LENALIDOMIDE [Suspect]
     Active Substance: LENALIDOMIDE
     Dosage: 15 MG, UNK
     Route: 065
     Dates: start: 20171009, end: 20171029
  48. BISOHEXAL [Concomitant]
     Active Substance: BISOPROLOL FUMARATE
     Dosage: 1.75 MG, QD
  49. DEXAMETHASONE. [Suspect]
     Active Substance: DEXAMETHASONE
     Dosage: 40 MG, UNK
     Route: 065
     Dates: start: 20170911, end: 20170911
  50. DEXAMETHASONE. [Suspect]
     Active Substance: DEXAMETHASONE
     Dosage: 40 MG, UNK
     Route: 065
     Dates: start: 20171023, end: 20171023
  51. CARFILZOMIB [Suspect]
     Active Substance: CARFILZOMIB
     Indication: PLASMA CELL MYELOMA
     Dosage: 27 MG, UNK
     Route: 042
     Dates: start: 20170515, end: 20170516
  52. CARFILZOMIB [Suspect]
     Active Substance: CARFILZOMIB
     Dosage: 27 MG, UNK
     Route: 042
     Dates: start: 20170410, end: 20170411
  53. CARFILZOMIB [Suspect]
     Active Substance: CARFILZOMIB
     Dosage: 27 MG, UNK
     Route: 042
     Dates: start: 20170717, end: 20170718
  54. CARFILZOMIB [Suspect]
     Active Substance: CARFILZOMIB
     Dosage: 27 MG, UNK
     Route: 042
     Dates: start: 20170621, end: 20170621
  55. CARFILZOMIB [Suspect]
     Active Substance: CARFILZOMIB
     Dosage: 27 MG, UNK
     Route: 042
     Dates: start: 20170508, end: 20170509
  56. CARFILZOMIB [Suspect]
     Active Substance: CARFILZOMIB
     Dosage: 27 MG, UNK
     Route: 042
     Dates: start: 20170904, end: 20170905
  57. CARFILZOMIB [Suspect]
     Active Substance: CARFILZOMIB
     Dosage: 27 MG, UNK
     Route: 042
     Dates: start: 20170828, end: 20170829
  58. CARFILZOMIB [Suspect]
     Active Substance: CARFILZOMIB
     Dosage: 27 MG, UNK
     Route: 042
     Dates: start: 20170703, end: 20170704
  59. CARFILZOMIB [Suspect]
     Active Substance: CARFILZOMIB
     Dosage: 27 MG, UNK
     Route: 042
     Dates: start: 20170911, end: 20170912
  60. LENALIDOMIDE [Suspect]
     Active Substance: LENALIDOMIDE
     Dosage: 20 MG, UNK
     Route: 065
     Dates: start: 20170731, end: 20170806
  61. LENALIDOMIDE [Suspect]
     Active Substance: LENALIDOMIDE
     Dosage: 25 MG, UNK
     Route: 065
     Dates: start: 20170612, end: 20170627
  62. LENALIDOMIDE [Suspect]
     Active Substance: LENALIDOMIDE
     Dosage: 20 MG, UNK
     Route: 065
     Dates: start: 20170814, end: 20170820

REACTIONS (1)
  - Thrombocytopenia [Recovered/Resolved]

NARRATIVE: CASE EVENT DATE: 20170626
